FAERS Safety Report 19478197 (Version 1)
Quarter: 2021Q2

REPORT INFORMATION
  Report Type: Spontaneous
  Country: US (occurrence: US)
  Receive Date: 20210630
  Receipt Date: 20210630
  Transmission Date: 20210717
  Serious: No
  Sender: FDA-Public Use
  Company Number: US-SA-2021SA213080

PATIENT
  Age: 58 Year
  Sex: Female

DRUGS (4)
  1. AUBAGIO [Suspect]
     Active Substance: TERIFLUNOMIDE
     Indication: MULTIPLE SCLEROSIS
  2. AUBAGIO [Suspect]
     Active Substance: TERIFLUNOMIDE
     Indication: DEHYDRATION
  3. AUBAGIO [Suspect]
     Active Substance: TERIFLUNOMIDE
     Indication: ILLNESS
     Dosage: 14 MG, QD
     Route: 048
     Dates: end: 202106
  4. AUBAGIO [Suspect]
     Active Substance: TERIFLUNOMIDE
     Indication: HYPOTHYROIDISM

REACTIONS (2)
  - Pain [Not Recovered/Not Resolved]
  - Product use in unapproved indication [Unknown]

NARRATIVE: CASE EVENT DATE: 202106
